FAERS Safety Report 8041029-4 (Version None)
Quarter: 2012Q1

REPORT INFORMATION
  Report Type: 
  Country: None (occurrence: None)
  Receive Date: 20120109
  Receipt Date: 20111227
  Transmission Date: 20120608
  Serious: Yes (Hospitalization, Other)
  Sender: FDA-Public Use
  Company Number: 2011P1015325

PATIENT
  Age: 64 Year
  Sex: Male
  Weight: 95 kg

DRUGS (26)
  1. CLOPIDOGREL [Concomitant]
  2. OMEPRAZOLE [Concomitant]
  3. SPIRONOLACTONE [Concomitant]
  4. DOCUSATE SODIUM [Concomitant]
  5. ENEMA OF MINERAL OIL AND SOAPSUDS [Concomitant]
  6. FUROSEMIDE [Concomitant]
  7. ACARBOSE [Concomitant]
  8. AMOXICILLIN [Concomitant]
  9. PRAVASTATIN [Concomitant]
  10. DIGOXIN [Concomitant]
  11. POLYETHYLENE GLYCOL SOLUTION [Concomitant]
  12. GLYBURIDE [Concomitant]
  13. METOPROLOL TARTRATE [Concomitant]
  14. LISINOPRIL [Concomitant]
  15. CLARITHROMYCIN [Concomitant]
  16. OMEGA-3 FATTY ACID [Concomitant]
  17. METFORMIN HYDROCHLORIDE [Concomitant]
  18. SIMVASTATIN [Concomitant]
  19. AMLODIPINE [Concomitant]
  20. FINASTERIDE [Concomitant]
  21. TERAZOSIN HCL [Concomitant]
  22. GLIPIZIDE [Concomitant]
  23. ISOSORBIDE MONONITRATE [Concomitant]
  24. DILTIAZEM [Suspect]
     Indication: VENTRICULAR DYSFUNCTION
     Dosage: 30 MG;Q6H  : 60 MG;Q6H : 120 MG;Q6H
  25. HYDROCHLOROTHIAZIDE [Concomitant]
  26. ASPIRIN [Concomitant]

REACTIONS (2)
  - THYROID DISORDER [None]
  - ILEUS PARALYTIC [None]
